FAERS Safety Report 11930554 (Version 1)
Quarter: 2016Q1

REPORT INFORMATION
  Report Type: Spontaneous
  Country: US (occurrence: None)
  Receive Date: 20160119
  Receipt Date: 20160119
  Transmission Date: 20160526
  Serious: Yes (Other)
  Sender: FDA-Public Use
  Company Number: None

PATIENT
  Age: 64 Year
  Sex: Female
  Weight: 78.02 kg

DRUGS (8)
  1. ESOMEPRAZOL [Concomitant]
     Active Substance: ESOMEPRAZOLE
  2. CIMITIDINE [Concomitant]
  3. BISOPRIL/HCTZ [Concomitant]
  4. FOLIC ACID. [Concomitant]
     Active Substance: FOLIC ACID
  5. CALCIUM [Concomitant]
     Active Substance: CALCIUM
  6. HUMIRA [Suspect]
     Active Substance: ADALIMUMAB
     Indication: RHEUMATOID ARTHRITIS
     Dosage: EVERY 2 WEEKS INTO THE MUSCLE
     Dates: start: 20151230, end: 20151230
  7. VITAMIN D [Concomitant]
     Active Substance: CHOLECALCIFEROL
  8. CELEBREX [Concomitant]
     Active Substance: CELECOXIB

REACTIONS (3)
  - Swelling face [None]
  - Pruritus [None]
  - Weight increased [None]

NARRATIVE: CASE EVENT DATE: 20160107
